FAERS Safety Report 23820147 (Version 1)
Quarter: 2024Q2

REPORT INFORMATION
  Report Type: Spontaneous
  Country: US (occurrence: None)
  Receive Date: 20240503
  Receipt Date: 20240503
  Transmission Date: 20240715
  Serious: Yes (Other)
  Sender: FDA-Public Use
  Company Number: None

PATIENT
  Age: 42 Year
  Sex: Female

DRUGS (1)
  1. ENTYVIO [Suspect]
     Active Substance: VEDOLIZUMAB
     Dosage: 300 MG EVERY 56 DAYS INTRAVENOUS?
     Route: 042
     Dates: start: 20230612

REACTIONS (3)
  - Flank pain [None]
  - Renal pain [None]
  - Tinnitus [None]

NARRATIVE: CASE EVENT DATE: 20240502
